FAERS Safety Report 9203789 (Version 3)
Quarter: 2013Q2

REPORT INFORMATION
  Report Type: Spontaneous
  Country: IT (occurrence: IT)
  Receive Date: 20130402
  Receipt Date: 20130423
  Transmission Date: 20140414
  Serious: Yes (Hospitalization)
  Sender: FDA-Public Use
  Company Number: IT-BRISTOL-MYERS SQUIBB COMPANY-18710384

PATIENT
  Age: 80 Year
  Sex: Male

DRUGS (5)
  1. COUMADIN TABS 5 MG [Suspect]
     Indication: ATRIAL FIBRILLATION
     Dosage: INTER ON 18JUL12?WAS SUSPENDED FOR ONLY TWO DAYS AND WAS TAKEN AGAIN PRESUMABLY ON 20-JUL-2012
     Route: 048
     Dates: start: 20001201
  2. ENAPREN [Suspect]
     Indication: HYPERTENSION
     Dosage: INTER ON 18JUL12
     Route: 048
     Dates: start: 20001201
  3. AMLODIPINE BESYLATE [Concomitant]
     Indication: HYPERTENSIVE HEART DISEASE
     Route: 048
     Dates: start: 20001211, end: 20120718
  4. LANSOPRAZOLE [Concomitant]
     Indication: PROPHYLAXIS AGAINST GASTROINTESTINAL ULCER
     Route: 048
     Dates: start: 20001201, end: 20120718
  5. LASIX [Concomitant]
     Indication: HYPERTENSIVE HEART DISEASE
     Route: 048
     Dates: start: 20001201, end: 20120718

REACTIONS (4)
  - Hypotension [Recovering/Resolving]
  - Dizziness [Recovering/Resolving]
  - Hyperhidrosis [Recovering/Resolving]
  - International normalised ratio increased [Recovering/Resolving]
